FAERS Safety Report 24344958 (Version 1)
Quarter: 2024Q3

REPORT INFORMATION
  Report Type: Spontaneous
  Country: RU (occurrence: RU)
  Receive Date: 20240920
  Receipt Date: 20240920
  Transmission Date: 20241017
  Serious: Yes (Other)
  Sender: ELI LILLY AND CO
  Company Number: RU-Merck Healthcare KGaA-2024048570

PATIENT
  Age: 48 Year
  Sex: Female

DRUGS (6)
  1. ERBITUX [Suspect]
     Active Substance: CETUXIMAB
     Indication: Squamous cell carcinoma of head and neck
     Dosage: 400 MG/M2, WEEKLY (1/W)
     Route: 042
     Dates: start: 20230726
  2. ERBITUX [Suspect]
     Active Substance: CETUXIMAB
     Dosage: 250 MG/M2, WEEKLY (1/W)
     Route: 042
  3. DOCETAXEL [Suspect]
     Active Substance: DOCETAXEL\DOCETAXEL ANHYDROUS
     Indication: Squamous cell carcinoma of head and neck
     Dosage: 75 MG/M2, UNK
     Route: 042
     Dates: start: 20230726
  4. CISPLATIN [Suspect]
     Active Substance: CISPLATIN
     Indication: Squamous cell carcinoma of head and neck
     Dosage: 40 MG/M2, WEEKLY (1/W)
     Route: 042
  5. CISPLATIN [Suspect]
     Active Substance: CISPLATIN
     Dosage: 75 MG/M2, UNK
     Route: 042
     Dates: start: 20230726
  6. NIMESULIDE [Concomitant]
     Active Substance: NIMESULIDE
     Indication: Anaesthesia
     Dosage: 100 MG, DAILY

REACTIONS (5)
  - Lymphopenia [Unknown]
  - Anaemia [Unknown]
  - Neutropenia [Unknown]
  - Leukopenia [Recovered/Resolved]
  - Off label use [Unknown]
